FAERS Safety Report 19219897 (Version 1)
Quarter: 2021Q2

REPORT INFORMATION
  Report Type: Not Available
  Country: None (occurrence: None)
  Receive Date: 20210505
  Receipt Date: 20210505
  Transmission Date: 20210717
  Serious: No
  Sender: FDA-Public Use
  Company Number: ROCHE-2824208

PATIENT

DRUGS (1)
  1. LUCENTIS [Suspect]
     Active Substance: RANIBIZUMAB
     Dosage: 0.05 ML, QMO
     Dates: start: 20210426

REACTIONS (4)
  - Endophthalmitis [None]
  - Product quality issue [None]
  - Visual acuity reduced [None]
  - Ocular hyperaemia [None]

NARRATIVE: CASE EVENT DATE: 20210426
